FAERS Safety Report 6997762-6 (Version None)
Quarter: 2010Q3

REPORT INFORMATION
  Report Type: 
  Country: None (occurrence: None)
  Receive Date: 20100919
  Receipt Date: 20100916
  Transmission Date: 20110219
  Serious: Yes (Hospitalization)
  Sender: FDA-Public Use
  Company Number: IT-BRISTOL-MYERS SQUIBB COMPANY-15267578

PATIENT
  Age: 86 Year
  Sex: Male

DRUGS (9)
  1. COUMADIN [Suspect]
     Indication: ATRIAL FIBRILLATION
     Dosage: INTERRUPTED ON 22JUL2010
     Dates: start: 19981001
  2. SIMVASTATIN [Concomitant]
     Route: 048
  3. EUTIROX [Concomitant]
     Dosage: TABS
     Route: 048
  4. LASIX [Concomitant]
     Route: 048
  5. AMIODARONE HCL [Concomitant]
     Route: 048
  6. URODIE [Concomitant]
     Route: 048
  7. TRIATEC [Concomitant]
     Route: 048
  8. RIOPAN [Concomitant]
     Dosage: TABS
     Route: 048
  9. KANRENOL [Concomitant]
     Route: 048

REACTIONS (2)
  - HEAD INJURY [None]
  - SUBDURAL HAEMATOMA [None]
